FAERS Safety Report 10160324 (Version 2)
Quarter: 2014Q2

REPORT INFORMATION
  Report Type: Spontaneous
  Country: US (occurrence: US)
  Receive Date: 20140508
  Receipt Date: 20140625
  Transmission Date: 20141212
  Serious: Yes (Hospitalization)
  Sender: FDA-Public Use
  Company Number: US-GLAXOSMITHKLINE-A1071381A

PATIENT
  Age: 56 Year
  Sex: Male

DRUGS (7)
  1. VENTOLIN [Suspect]
     Indication: ASTHMA
     Dosage: 1PUFF AS REQUIRED
     Route: 055
  2. ADVAIR HFA [Suspect]
     Indication: PRODUCT USED FOR UNKNOWN INDICATION
     Route: 065
  3. NEBULIZER [Concomitant]
  4. BLOOD PRESSURE MEDICATION [Concomitant]
  5. HEART MEDICATION [Concomitant]
  6. ASPIRIN [Concomitant]
  7. SYMBICORT [Concomitant]

REACTIONS (7)
  - Pneumonia [Unknown]
  - Pancreatitis [Unknown]
  - H1N1 influenza [Recovered/Resolved]
  - Dyspnoea [Unknown]
  - Cough [Unknown]
  - Mechanical ventilation [Unknown]
  - Oxygen supplementation [Unknown]
